FAERS Safety Report 4932329-2 (Version None)
Quarter: 2006Q1

REPORT INFORMATION
  Report Type: 
  Country: None (occurrence: None)
  Receive Date: 20060301
  Receipt Date: 20060222
  Transmission Date: 20060701
  Serious: Yes (Hospitalization, Other)
  Sender: FDA-Public Use
  Company Number: 11390

PATIENT
  Age: 7 Year
  Sex: Female
  Weight: 37 kg

DRUGS (1)
  1. PAMIDRONIC ACID [Suspect]
     Indication: FIBROUS DYSPLASIA OF BONE
     Dosage: 30 MG OTH, IV
     Route: 042
     Dates: start: 20050512, end: 20050512

REACTIONS (7)
  - ABDOMINAL PAIN [None]
  - CHEST PAIN [None]
  - INJECTION SITE PAIN [None]
  - MALAISE [None]
  - PAIN IN EXTREMITY [None]
  - PYREXIA [None]
  - VOMITING [None]
